FAERS Safety Report 12094688 (Version 2)
Quarter: 2016Q1

REPORT INFORMATION
  Report Type: Spontaneous
  Country: JP (occurrence: JP)
  Receive Date: 20160219
  Receipt Date: 20160224
  Transmission Date: 20160526
  Serious: Yes (Death, Hospitalization, Other)
  Sender: FDA-Public Use
  Company Number: JP-ELI_LILLY_AND_COMPANY-JP201602006373

PATIENT
  Age: 72 Year
  Sex: Female
  Weight: 31 kg

DRUGS (21)
  1. OXYCONTIN [Concomitant]
     Active Substance: OXYCODONE HYDROCHLORIDE
     Indication: CANCER PAIN
     Dosage: UNK UNK, UNKNOWN
     Route: 048
  2. OXYCONTIN [Concomitant]
     Active Substance: OXYCODONE HYDROCHLORIDE
     Dosage: 10MG/DAY
  3. OXINORM                            /00045603/ [Concomitant]
     Active Substance: OXYCODONE HYDROCHLORIDE
     Indication: CANCER PAIN
     Dosage: UNK UNK, UNKNOWN
     Route: 048
  4. 5-FU                               /00098801/ [Concomitant]
     Active Substance: FLUOROURACIL
     Dosage: 2250 MG, UNKNOWN
     Dates: start: 20151201, end: 20160121
  5. METHYCOBAL [Concomitant]
     Active Substance: METHYLCOBALAMIN
     Dosage: 1500MICROG
  6. ZOLPIDEM TARTRATE. [Concomitant]
     Active Substance: ZOLPIDEM TARTRATE
     Indication: INSOMNIA
     Dosage: UNK UNK, UNKNOWN
     Route: 048
  7. CALONAL [Concomitant]
     Active Substance: ACETAMINOPHEN
     Indication: CANCER PAIN
     Dosage: 2000MG/DAY
     Route: 048
     Dates: start: 20160105
  8. MS REISHIPPU [Concomitant]
     Active Substance: CAMPHOR\MENTHOL\METHYL SALICYLATE
     Indication: CANCER PAIN
     Dosage: UNK UNK, UNKNOWN
     Route: 062
  9. MS REISHIPPU [Concomitant]
     Active Substance: CAMPHOR\MENTHOL\METHYL SALICYLATE
     Dosage: UNK
     Route: 062
  10. 5-FU                               /00098801/ [Concomitant]
     Active Substance: FLUOROURACIL
     Indication: RECTAL CANCER
     Dosage: 2250 MG, UNK
     Route: 040
     Dates: start: 20151201, end: 20160121
  11. MAGLAX [Concomitant]
     Active Substance: MAGNESIUM OXIDE
     Indication: CONSTIPATION
     Dosage: UNK UNK, UNKNOWN
     Route: 048
  12. METHYCOBAL [Concomitant]
     Active Substance: METHYLCOBALAMIN
     Indication: CANCER PAIN
     Dosage: UNK UNK, UNKNOWN
     Route: 048
  13. ZOLPIDEM TARTRATE. [Concomitant]
     Active Substance: ZOLPIDEM TARTRATE
     Dosage: 5MG/DAY
     Route: 048
  14. ERBITUX [Suspect]
     Active Substance: CETUXIMAB
     Indication: RECTAL CANCER
     Dosage: 581 MG, UNKNOWN
     Route: 042
     Dates: start: 20151201, end: 20160119
  15. OXINORM                            /00045603/ [Concomitant]
     Active Substance: OXYCODONE HYDROCHLORIDE
     Dosage: UNK
     Route: 048
  16. IRINOTECAN                         /01280202/ [Concomitant]
     Active Substance: IRINOTECAN
     Dosage: UNK, UNKNOWN
     Route: 065
     Dates: start: 20160105, end: 20160119
  17. LEVOFOLINATE [Concomitant]
     Active Substance: LEVOLEUCOVORIN CALCIUM
     Indication: RECTAL CANCER
     Dosage: 232 MG, UNK
     Route: 065
     Dates: start: 20151201, end: 20160119
  18. MAGLAX [Concomitant]
     Active Substance: MAGNESIUM OXIDE
     Dosage: 990MG/DAY
  19. IRINOTECAN                         /01280202/ [Concomitant]
     Active Substance: IRINOTECAN
     Indication: RECTAL CANCER
     Dosage: 140 MG, UNKNOWN
     Route: 065
     Dates: start: 20151201, end: 20160104
  20. DEXART [Concomitant]
     Active Substance: DEXAMETHASONE SODIUM PHOSPHATE
     Indication: PROPHYLAXIS
     Dosage: 6.6 MG, UNK
     Route: 065
     Dates: start: 20151201, end: 20160119
  21. ALOXI [Concomitant]
     Active Substance: PALONOSETRON HYDROCHLORIDE
     Indication: PROPHYLAXIS
     Dosage: 0.75MG/DAY
     Route: 065
     Dates: start: 20151201, end: 20160119

REACTIONS (6)
  - Animal bite [Unknown]
  - Neutrophil count decreased [Recovered/Resolved]
  - Pneumothorax [Unknown]
  - White blood cell count decreased [Recovered/Resolved]
  - Lymphangiosis carcinomatosa [Fatal]
  - Pneumonia [Fatal]

NARRATIVE: CASE EVENT DATE: 20151215
